FAERS Safety Report 12475157 (Version 4)
Quarter: 2019Q2

REPORT INFORMATION
  Report Type: Spontaneous
  Country: US (occurrence: US)
  Receive Date: 20160617
  Receipt Date: 20190614
  Transmission Date: 20190711
  Serious: No
  Sender: FDA-Public Use
  Company Number: US-PFIZER INC-2016270440

PATIENT
  Age: 58 Year
  Sex: Female
  Weight: 77.11 kg

DRUGS (6)
  1. CYCLOSPORIN [Concomitant]
     Active Substance: CYCLOSPORINE
     Indication: RENAL TRANSPLANT
     Dosage: 100 MG, 2X/DAY
     Route: 048
  2. RAPAMUNE [Suspect]
     Active Substance: SIROLIMUS
     Indication: RENAL TRANSPLANT
     Dosage: 2 MG, DAILY (TUESDAY, FRIDAY)
     Dates: start: 20190415
  3. PREDNISONE. [Concomitant]
     Active Substance: PREDNISONE
     Indication: RENAL TRANSPLANT
     Dosage: 5 MG, DAILY
     Route: 048
  4. RAPAMUNE [Suspect]
     Active Substance: SIROLIMUS
     Dosage: 4 MG, DAILY (2 MG 2 TABLETS, MONDAY, WEDNESDAY, FRIDAY)
  5. RAPAMUNE [Suspect]
     Active Substance: SIROLIMUS
     Dosage: 2 MG, 1X/DAY (SIG: 2 TAB(S) ON M, W, F (MONDAY, WEDNESDAY AND FRIDAY) ONCE A DAY 90 DAYS)
  6. RAPAMUNE [Suspect]
     Active Substance: SIROLIMUS
     Dosage: 1 MG, 1X/DAY (1 TAB (S) ON T, T, S, S,(TUESDAY, THURSDAY, SATURDAY AND SUNDAY) ONCE A DAY 90 DAYS)

REACTIONS (5)
  - Nasopharyngitis [Unknown]
  - Intentional product use issue [Unknown]
  - Swelling face [Unknown]
  - Product prescribing error [Unknown]
  - Malaise [Unknown]

NARRATIVE: CASE EVENT DATE: 20190415
